FAERS Safety Report 5009305-7 (Version None)
Quarter: 2006Q2

REPORT INFORMATION
  Report Type: 
  Country: None (occurrence: None)
  Receive Date: 20060524
  Receipt Date: 20060516
  Transmission Date: 20061013
  Serious: Yes (Hospitalization)
  Sender: FDA-Public Use
  Company Number: PHBS2006JP07517

PATIENT
  Age: 17 Year
  Sex: Female

DRUGS (2)
  1. TEGRETOL [Suspect]
     Indication: TEMPORAL LOBE EPILEPSY
     Dosage: 400 MG/DAY
     Route: 048
     Dates: start: 20060201
  2. MAGNESIUM OXIDE [Concomitant]
     Route: 048

REACTIONS (4)
  - GENERALISED OEDEMA [None]
  - HYPOPROTEINAEMIA [None]
  - URINE OUTPUT INCREASED [None]
  - WEIGHT INCREASED [None]
